FAERS Safety Report 19147797 (Version 2)
Quarter: 2021Q2

REPORT INFORMATION
  Report Type: Spontaneous
  Country: US (occurrence: US)
  Receive Date: 20210416
  Receipt Date: 20210604
  Transmission Date: 20210717
  Serious: Yes (Hospitalization, Other)
  Sender: FDA-Public Use
  Company Number: US-ASTRAZENECA-2021A301989

PATIENT
  Age: 60 Year
  Sex: Female
  Weight: 55.8 kg

DRUGS (5)
  1. NORCO [Concomitant]
     Active Substance: ACETAMINOPHEN\HYDROCODONE BITARTRATE
     Dosage: FOR 15 YEARS
  2. SYMBICORT [Suspect]
     Active Substance: BUDESONIDE\FORMOTEROL FUMARATE DIHYDRATE
     Indication: CHRONIC OBSTRUCTIVE PULMONARY DISEASE
     Dosage: 2 PUFFS TWICE EACH DAY
     Route: 055
     Dates: start: 2018, end: 20210316
  3. BREZTRI [Suspect]
     Active Substance: BUDESONIDE\FORMOTEROL\GLYCOPYRRONIUM
     Indication: CHRONIC OBSTRUCTIVE PULMONARY DISEASE
     Dosage: 160MCG/7.2MCG/4.8MCG. TWO PUFFS TWICE EACH DAY
     Route: 055
     Dates: start: 20210316
  4. SYMBICORT [Suspect]
     Active Substance: BUDESONIDE\FORMOTEROL FUMARATE DIHYDRATE
     Indication: BRONCHITIS CHRONIC
     Dosage: 2 PUFFS TWICE EACH DAY
     Route: 055
     Dates: start: 2018, end: 20210316
  5. BREZTRI [Suspect]
     Active Substance: BUDESONIDE\FORMOTEROL\GLYCOPYRRONIUM
     Indication: BRONCHITIS CHRONIC
     Dosage: 160MCG/7.2MCG/4.8MCG. TWO PUFFS TWICE EACH DAY
     Route: 055
     Dates: start: 20210316

REACTIONS (13)
  - Gastrointestinal ulcer haemorrhage [Recovered/Resolved]
  - Peak expiratory flow rate decreased [Not Recovered/Not Resolved]
  - Drug delivery system issue [Unknown]
  - Dyspnoea [Recovering/Resolving]
  - Visual impairment [Not Recovered/Not Resolved]
  - Weight increased [Not Recovered/Not Resolved]
  - Cataract [Unknown]
  - Incorrect dose administered by device [Unknown]
  - Drug ineffective [Recovering/Resolving]
  - Hypopnoea [Recovering/Resolving]
  - Body height decreased [Not Recovered/Not Resolved]
  - Underweight [Recovered/Resolved]
  - Wrong technique in device usage process [Unknown]

NARRATIVE: CASE EVENT DATE: 20190704
